FAERS Safety Report 8491935-1 (Version None)
Quarter: 2012Q3

REPORT INFORMATION
  Report Type: 
  Country: None (occurrence: None)
  Receive Date: 20120706
  Receipt Date: 20120417
  Transmission Date: 20120928
  Serious: No
  Sender: FDA-Public Use
  Company Number: US-GLAXOSMITHKLINE-A0973940A

PATIENT
  Sex: Female

DRUGS (2)
  1. FLOVENT [Suspect]
     Indication: ASTHMA
     Dosage: 1PUFF TWICE PER DAY
     Route: 055
     Dates: start: 20100101
  2. NO CONCURRENT MEDICATION [Concomitant]

REACTIONS (4)
  - DYSPNOEA [None]
  - THERAPEUTIC RESPONSE DECREASED [None]
  - TACHYPNOEA [None]
  - PRODUCT QUALITY ISSUE [None]
